FAERS Safety Report 4542163-3 (Version None)
Quarter: 2004Q4

REPORT INFORMATION
  Report Type: 
  Country: None (occurrence: None)
  Receive Date: 20041227
  Receipt Date: 20041215
  Transmission Date: 20050328
  Serious: Yes (Hospitalization)
  Sender: FDA-Public Use
  Company Number: 2004UW25563

PATIENT
  Age: 71 Year
  Sex: Female

DRUGS (2)
  1. IRESSA [Suspect]
     Indication: NON-SMALL CELL LUNG CANCER
     Dosage: 250 MG PO
     Route: 048
     Dates: start: 20040720, end: 20040831
  2. DOCETAXEL [Suspect]
     Indication: NON-SMALL CELL LUNG CANCER
     Dosage: 36 MG/M2
     Dates: start: 20040720, end: 20040824

REACTIONS (5)
  - CACHEXIA [None]
  - DIARRHOEA [None]
  - DISEASE PROGRESSION [None]
  - DRUG TOXICITY [None]
  - NAUSEA [None]
